FAERS Safety Report 4741658-7 (Version None)
Quarter: 2005Q3

REPORT INFORMATION
  Report Type: 
  Country: None (occurrence: None)
  Receive Date: 20050808
  Receipt Date: 20050727
  Transmission Date: 20060218
  Serious: Yes (Other)
  Sender: FDA-Public Use
  Company Number: 2005-07-2006

PATIENT
  Age: 48 Year
  Sex: Female

DRUGS (3)
  1. CELESTAMINE TAB [Suspect]
     Indication: PRURITUS
     Dosage: ORAL
     Route: 048
  2. PREDNISOLONE [Concomitant]
  3. SOBUZOXANE [Concomitant]

REACTIONS (2)
  - ACUTE GENERALISED EXANTHEMATOUS PUSTULOSIS [None]
  - CONDITION AGGRAVATED [None]
